FAERS Safety Report 21434299 (Version 1)
Quarter: 2022Q4

REPORT INFORMATION
  Report Type: Spontaneous
  Country: US (occurrence: US)
  Receive Date: 20221010
  Receipt Date: 20221010
  Transmission Date: 20230113
  Serious: No
  Sender: FDA-Public Use
  Company Number: US-NOVARTISTESTPH-NVSC2022US228149

PATIENT
  Sex: Female

DRUGS (1)
  1. LEQVIO [Suspect]
     Active Substance: INCLISIRAN SODIUM
     Indication: Arteriosclerosis
     Dosage: 284 MG, ONCE/SINGLE, 284 MG/1.5 ML PREFILLED SYRINGE
     Route: 058
     Dates: start: 20220914, end: 20220914

REACTIONS (2)
  - Muscular weakness [Unknown]
  - Arthralgia [Unknown]
